FAERS Safety Report 8960654 (Version 1)
Quarter: 2012Q4

REPORT INFORMATION
  Report Type: 
  Country: DE (occurrence: US)
  Receive Date: 20121212
  Receipt Date: 20121212
  Transmission Date: 20130627
  Serious: Yes (Life-Threatening, Hospitalization)
  Sender: FDA-Public Use
  Company Number: US-MERCK-1212DEU002708

PATIENT
  Age: 73 Year
  Sex: Female

DRUGS (3)
  1. VELMETIA [Suspect]
     Indication: TYPE 2 DIABETES MELLITUS
     Dosage: 1000/50 mg, bid
     Route: 048
     Dates: start: 20100607, end: 20100614
  2. DIOVAN HCT [Suspect]
     Indication: HYPERTENSION
     Dosage: 180/12.5 mg, qd
     Route: 048
     Dates: end: 20100614
  3. RASILEZ [Suspect]
     Indication: HYPERTENSION
     Dosage: 150 mg, qd
     Route: 048
     Dates: start: 20100607, end: 20100614

REACTIONS (2)
  - Renal failure acute [Unknown]
  - Lactic acidosis [Unknown]
